FAERS Safety Report 7056544-X (Version None)
Quarter: 2010Q4

REPORT INFORMATION
  Report Type: 
  Country: None (occurrence: None)
  Receive Date: 20101018
  Receipt Date: 20101005
  Transmission Date: 20110411
  Serious: Yes (Hospitalization)
  Sender: FDA-Public Use
  Company Number: BR-001322

PATIENT

DRUGS (1)
  1. NAGLAZYME [Suspect]
     Indication: MUCOPOLYSACCHARIDOSIS VI
     Dosage: (DOSING REGIMENT AND FREQUENCY NOT REPORTED INTRAVENOUS DRIP)
     Route: 041

REACTIONS (1)
  - INGUINAL HERNIA [None]
